FAERS Safety Report 11251229 (Version 6)
Quarter: 2017Q1

REPORT INFORMATION
  Report Type: Report from Study
  Country: CH (occurrence: CH)
  Receive Date: 20150708
  Receipt Date: 20170215
  Transmission Date: 20170428
  Serious: Yes (Death, Hospitalization, Other)
  Sender: FDA-Public Use
  Company Number: CH-INCYTE CORPORATION-2015IN003068

PATIENT
  Age: 66 Year
  Sex: Male
  Weight: 60 kg

DRUGS (28)
  1. SALMETEROL/FLUTICASONPROPIONAAT [Concomitant]
     Active Substance: SALMETEROL
     Indication: CHRONIC OBSTRUCTIVE PULMONARY DISEASE
     Dosage: 2 DF, UNK
     Route: 065
     Dates: start: 20141017
  2. PARACETAMOL [Concomitant]
     Active Substance: ACETAMINOPHEN
     Dosage: 4 DF, UNK
     Route: 065
     Dates: start: 20130604
  3. PARACETAMOL [Concomitant]
     Active Substance: ACETAMINOPHEN
     Indication: PRODUCT USED FOR UNKNOWN INDICATION
     Dosage: 500 MG, UNK
     Route: 065
  4. CLAMOXYL                                /NET/ [Concomitant]
     Active Substance: AMOXICILLIN\CLAVULANIC ACID
     Indication: PRODUCT USED FOR UNKNOWN INDICATION
     Route: 065
  5. ACICLOVIR [Concomitant]
     Active Substance: ACYCLOVIR
     Indication: PRODUCT USED FOR UNKNOWN INDICATION
     Route: 065
  6. ACICLOVIR [Concomitant]
     Active Substance: ACYCLOVIR
     Route: 065
  7. JAKAVI [Suspect]
     Active Substance: RUXOLITINIB
     Dosage: UNK
     Route: 065
     Dates: start: 20130702, end: 201402
  8. TORASEMID [Concomitant]
     Active Substance: TORSEMIDE
     Indication: HYPERTENSION
  9. LITALIR [Concomitant]
     Active Substance: HYDROXYUREA
     Indication: PRODUCT USED FOR UNKNOWN INDICATION
     Dosage: UNK
     Route: 065
     Dates: start: 201402
  10. JAKAVI [Suspect]
     Active Substance: RUXOLITINIB
     Indication: MYELOFIBROSIS
     Dosage: 20 MG, BID
     Route: 065
  11. PARACETAMOL [Concomitant]
     Active Substance: ACETAMINOPHEN
     Indication: ANALGESIC THERAPY
     Dosage: 500 MG, UNK
     Route: 065
  12. TORASEMID [Concomitant]
     Active Substance: TORSEMIDE
     Indication: HYPERTONIA
     Dosage: 1 DF, UNK
     Route: 065
     Dates: start: 20140715
  13. PANTOPRAZOL [Concomitant]
     Active Substance: PANTOPRAZOLE SODIUM
     Indication: GASTROOESOPHAGEAL REFLUX PROPHYLAXIS
     Dosage: 1 DF, UNK
     Route: 065
     Dates: start: 20140225
  14. MORPHINE [Concomitant]
     Active Substance: MORPHINE
     Indication: ANALGESIC THERAPY
     Dosage: 2 DF, UNK
     Route: 065
     Dates: start: 20131022
  15. ACICLOVIR [Concomitant]
     Active Substance: ACYCLOVIR
     Route: 065
  16. ACICLOVIR [Concomitant]
     Active Substance: ACYCLOVIR
     Route: 065
  17. PARACETAMOL [Concomitant]
     Active Substance: ACETAMINOPHEN
     Indication: PYREXIA
  18. PROPANOLOL [Concomitant]
     Active Substance: PROPRANOLOL HYDROCHLORIDE
     Indication: PRODUCT USED FOR UNKNOWN INDICATION
  19. JAKAVI [Suspect]
     Active Substance: RUXOLITINIB
     Dosage: UNK
     Route: 065
     Dates: start: 201408, end: 20150528
  20. PROPANOLOL [Concomitant]
     Active Substance: PROPRANOLOL HYDROCHLORIDE
     Indication: VARICES OESOPHAGEAL
     Dosage: 1 DF, UNK
     Route: 065
     Dates: start: 20150407
  21. ACICLOVIR [Concomitant]
     Active Substance: ACYCLOVIR
     Route: 065
  22. JAKAVI [Suspect]
     Active Substance: RUXOLITINIB
     Dosage: 15 MG, BID
     Route: 048
     Dates: start: 20140610
  23. DEXAMETASON [Concomitant]
     Active Substance: DEXAMETHASONE
     Dosage: 10 MG, UNK
  24. ACICLOVIR [Concomitant]
     Active Substance: ACYCLOVIR
     Route: 065
  25. NATRIUMPICOSULFAT [Concomitant]
     Indication: CONSTIPATION
     Dosage: 20 GTT, UNK
     Route: 065
     Dates: start: 20131022
  26. NATRIUMPICOSULFAT [Concomitant]
     Indication: PRODUCT USED FOR UNKNOWN INDICATION
  27. DEXAMETASON [Concomitant]
     Active Substance: DEXAMETHASONE
     Indication: PRODUCT USED FOR UNKNOWN INDICATION
     Dosage: UNK
     Route: 065
  28. ROCEPHIN [Concomitant]
     Active Substance: CEFTRIAXONE SODIUM
     Indication: PRODUCT USED FOR UNKNOWN INDICATION
     Route: 065

REACTIONS (26)
  - Encephalitis [Unknown]
  - Meningitis pneumococcal [Unknown]
  - Gastric varices [Unknown]
  - Pneumonia [Unknown]
  - Somnolence [Unknown]
  - Hepatosplenomegaly [Unknown]
  - Pleocytosis [Unknown]
  - Blood glucose decreased [Unknown]
  - Pneumococcal sepsis [Fatal]
  - Acute hepatic failure [Fatal]
  - Portal hypertensive gastropathy [Unknown]
  - Portal hypertension [Unknown]
  - Thrombosis [Unknown]
  - Myoclonus [Unknown]
  - Oesophageal varices haemorrhage [Not Recovered/Not Resolved]
  - Coagulopathy [Unknown]
  - Bone pain [Unknown]
  - Post procedural discharge [Unknown]
  - Fatigue [Unknown]
  - Gastrointestinal haemorrhage [Unknown]
  - Liver abscess [Unknown]
  - Barrett^s oesophagus [Unknown]
  - Portal vein thrombosis [Unknown]
  - Varices oesophageal [Unknown]
  - Ascites [Unknown]
  - Lactic acidosis [Unknown]

NARRATIVE: CASE EVENT DATE: 20140712
